FAERS Safety Report 9722412 (Version 3)
Quarter: 2014Q2

REPORT INFORMATION
  Report Type: Report from Study
  Country: JP (occurrence: JP)
  Receive Date: 20131202
  Receipt Date: 20140607
  Transmission Date: 20141212
  Serious: Yes (Death, Other)
  Sender: FDA-Public Use
  Company Number: PHHY2013JP099937

PATIENT
  Age: 59 Year
  Sex: Male
  Weight: 68 kg

DRUGS (12)
  1. ICL670A [Suspect]
     Indication: APLASTIC ANAEMIA
     Dosage: 500 MG, DAILY ON ALTERNATE DAYS
     Route: 048
     Dates: start: 20081113
  2. ICL670A [Suspect]
     Dosage: 500 MG, DAILY
     Route: 048
     Dates: start: 20101112
  3. PRIMOBOLAN [Concomitant]
     Indication: APLASTIC ANAEMIA
     Dosage: 15 MG, UNK
     Route: 048
  4. TAKEPRON [Concomitant]
     Dosage: 15 MG, UNK
     Route: 048
  5. LASIX [Concomitant]
     Dosage: 40 MG, UNK
     Route: 048
  6. PREDONINE [Concomitant]
     Dosage: 10 MG, UNK
     Route: 048
  7. PREDONINE [Concomitant]
     Dosage: 7.5 MG, UNK
     Route: 048
  8. SEIBULE [Concomitant]
     Dosage: 150 MG, UNK
     Route: 048
     Dates: start: 20101112
  9. AMARYL [Concomitant]
     Dosage: 1 MG, UNK
     Route: 048
     Dates: start: 20101112
  10. DIDRONEL                           /01189301/ [Concomitant]
     Dosage: 200 MG, UNK
     Dates: start: 20081113, end: 20081116
  11. ISODINE GARGLE [Concomitant]
     Indication: PROPHYLAXIS
     Dosage: UNK UKN, UNK
     Dates: start: 20081113
  12. ACTONEL [Concomitant]
     Dosage: 17.5 MG, UNK
     Route: 048
     Dates: start: 20100407

REACTIONS (2)
  - Tumour rupture [Fatal]
  - Hepatic neoplasm [Fatal]
